FAERS Safety Report 25777022 (Version 1)
Quarter: 2025Q3

REPORT INFORMATION
  Report Type: Spontaneous
  Country: US (occurrence: US)
  Receive Date: 20250909
  Receipt Date: 20250909
  Transmission Date: 20251021
  Serious: No
  Sender: DOMPE FARMACEUTICI
  Company Number: US-FARMAPROD-202409-3395

PATIENT
  Sex: Female

DRUGS (7)
  1. OXERVATE [Suspect]
     Active Substance: CENEGERMIN-BKBJ
     Indication: Neurotrophic keratopathy
     Route: 047
     Dates: start: 20200219, end: 20240415
  2. OXERVATE [Suspect]
     Active Substance: CENEGERMIN-BKBJ
     Route: 047
     Dates: start: 20220209, end: 20220406
  3. OXERVATE [Suspect]
     Active Substance: CENEGERMIN-BKBJ
     Route: 047
     Dates: start: 20240828
  4. LEVOTHYROXINE SODIUM [Concomitant]
     Active Substance: LEVOTHYROXINE SODIUM
  5. CLEAR EYES COMPLETE [Concomitant]
     Active Substance: HYPROMELLOSE 2906 (4000 MPA.S)\NAPHAZOLINE HYDROCHLORIDE\POLYSORBATE 80\ZINC SULFATE HEPTAHYDRATE
  6. LATANOPROST [Concomitant]
     Active Substance: LATANOPROST
  7. TIMOLOL MALEATE [Concomitant]
     Active Substance: TIMOLOL MALEATE

REACTIONS (3)
  - Eye pain [Unknown]
  - Somnolence [Unknown]
  - Hypertension [Unknown]
